FAERS Safety Report 24136880 (Version 1)
Quarter: 2024Q3

REPORT INFORMATION
  Report Type: Spontaneous
  Country: DE (occurrence: DE)
  Receive Date: 20240725
  Receipt Date: 20240725
  Transmission Date: 20241016
  Serious: Yes (Hospitalization)
  Sender: TORRENT
  Company Number: DE-TORRENT-00027037

PATIENT
  Age: 38 Year
  Sex: Male

DRUGS (1)
  1. ACYCLOVIR [Suspect]
     Active Substance: ACYCLOVIR
     Indication: Genital ulceration
     Dosage: UNKNOWN
     Route: 048

REACTIONS (1)
  - Drug resistance [Unknown]
